FAERS Safety Report 6511007-2 (Version None)
Quarter: 2009Q4

REPORT INFORMATION
  Report Type: 
  Country: None (occurrence: None)
  Receive Date: 20091222
  Receipt Date: 20090213
  Transmission Date: 20100525
  Serious: No
  Sender: FDA-Public Use
  Company Number: US-ASTRAZENECA-2009UW04183

PATIENT
  Age: 82 Year
  Sex: Female
  Weight: 47.2 kg

DRUGS (2)
  1. CRESTOR [Suspect]
     Route: 048
  2. UNSPECIFIED BLOOD PRESSURE MEDICATION [Concomitant]
     Indication: BLOOD PRESSURE

REACTIONS (2)
  - ABDOMINAL PAIN [None]
  - VOMITING [None]
